FAERS Safety Report 5642595-6 (Version None)
Quarter: 2008Q1

REPORT INFORMATION
  Report Type: 
  Country: None (occurrence: None)
  Receive Date: 20080228
  Receipt Date: 20080219
  Transmission Date: 20080703
  Serious: Yes (Other)
  Sender: FDA-Public Use
  Company Number: JP-JNJFOC-20080202998

PATIENT
  Sex: Female
  Weight: 46 kg

DRUGS (4)
  1. REMICADE [Suspect]
     Route: 042
  2. REMICADE [Suspect]
     Indication: CROHN'S DISEASE
     Route: 042
  3. FERROMIA [Concomitant]
     Indication: IRON DEFICIENCY ANAEMIA
     Route: 048
  4. FLUVOXAMINE MALEATE [Concomitant]
     Indication: DEPRESSION
     Route: 048

REACTIONS (3)
  - ACUTE MYELOID LEUKAEMIA [None]
  - DIZZINESS [None]
  - FALL [None]
